FAERS Safety Report 7349612-6 (Version None)
Quarter: 2011Q1

REPORT INFORMATION
  Report Type: 
  Country: None (occurrence: None)
  Receive Date: 20110309
  Receipt Date: 20110309
  Transmission Date: 20110831
  Serious: Yes (Other)
  Sender: FDA-Public Use
  Company Number: None

PATIENT
  Age: 50 Year
  Sex: Female
  Weight: 72.3 kg

DRUGS (1)
  1. PEG-INTRON [Suspect]

REACTIONS (3)
  - NEEDLE ISSUE [None]
  - INJURY ASSOCIATED WITH DEVICE [None]
  - MEDICATION ERROR [None]
